FAERS Safety Report 5117799-1 (Version None)
Quarter: 2006Q3

REPORT INFORMATION
  Report Type: 
  Country: None (occurrence: None)
  Receive Date: 20060929
  Receipt Date: 20060922
  Transmission Date: 20061208
  Serious: Yes (Other)
  Sender: FDA-Public Use
  Company Number: 2006SE05127

PATIENT
  Age: 73 Year
  Sex: Male
  Weight: 84 kg

DRUGS (5)
  1. CRESTOR [Suspect]
     Indication: BLOOD CHOLESTEROL INCREASED
     Dates: start: 20060717, end: 20060719
  2. CRESTOR [Suspect]
     Indication: HYPERTENSION
     Dates: start: 20060717, end: 20060719
  3. CRESTOR [Suspect]
     Indication: INFARCTION
     Dates: start: 20060717, end: 20060719
  4. NEBULIT [Concomitant]
     Indication: HYPERTENSION
     Route: 048
     Dates: start: 20040101
  5. EZETROL [Concomitant]

REACTIONS (5)
  - DRY MOUTH [None]
  - FLUSHING [None]
  - GINGIVAL HYPERTROPHY [None]
  - OEDEMA MOUTH [None]
  - SWOLLEN TONGUE [None]
